FAERS Safety Report 13028786 (Version 1)
Quarter: 2016Q4

REPORT INFORMATION
  Report Type: Spontaneous
  Country: US (occurrence: US)
  Receive Date: 20161214
  Receipt Date: 20161214
  Transmission Date: 20170207
  Serious: Yes (Hospitalization)
  Sender: FDA-Public Use
  Company Number: US-THE RITEDOSE CORPORATION-2016RIT000259

PATIENT
  Age: 73 Year
  Sex: Female

DRUGS (1)
  1. IPRATROPIUM BROMIDE INHALATION SOLUTION [Suspect]
     Active Substance: IPRATROPIUM BROMIDE
     Indication: PRODUCT USED FOR UNKNOWN INDICATION
     Dosage: UNK
     Route: 055

REACTIONS (5)
  - Dizziness [Unknown]
  - Blood pressure increased [Unknown]
  - Drug ineffective [Unknown]
  - Cardiac failure congestive [Unknown]
  - Hospitalisation [Unknown]
